FAERS Safety Report 5471393-1 (Version None)
Quarter: 2007Q3

REPORT INFORMATION
  Report Type: 
  Country: None (occurrence: None)
  Receive Date: 20070928
  Receipt Date: 20061024
  Transmission Date: 20080115
  Serious: No
  Sender: FDA-Public Use
  Company Number: US-BRISTOL-MYERS SQUIBB COMPANY-13520325

PATIENT
  Age: 52 Year
  Sex: Female

DRUGS (1)
  1. DEFINITY [Suspect]
     Indication: ECHOCARDIOGRAM
     Dosage: DOSE VALUE:  2 CC AND THEN 1.5 CC
     Route: 040
     Dates: start: 20060921, end: 20060921

REACTIONS (2)
  - BACK PAIN [None]
  - MUSCLE TIGHTNESS [None]
